FAERS Safety Report 4850219-0 (Version None)
Quarter: 2005Q4

REPORT INFORMATION
  Report Type: 
  Country: None (occurrence: None)
  Receive Date: 20051123
  Receipt Date: 20050812
  Transmission Date: 20060501
  Serious: Yes (Other)
  Sender: FDA-Public Use
  Company Number: 2005114495

PATIENT
  Age: 54 Year
  Sex: Male
  Weight: 70.3075 kg

DRUGS (3)
  1. LIPITOR [Suspect]
     Indication: BLOOD CHOLESTEROL INCREASED
     Dosage: 10 MG (10 MG, 1 IN 1 D)
     Dates: start: 20050101
  2. FIORICET [Concomitant]
  3. XANAX [Concomitant]

REACTIONS (9)
  - ARTHRALGIA [None]
  - BURNING SENSATION [None]
  - LIMB DISCOMFORT [None]
  - MYALGIA [None]
  - NEPHROLITHIASIS [None]
  - PAIN [None]
  - THROMBOPHLEBITIS [None]
  - VEIN DISORDER [None]
  - VEIN PAIN [None]
